FAERS Safety Report 10089381 (Version 1)
Quarter: 2014Q2

REPORT INFORMATION
  Report Type: Spontaneous
  Country: US (occurrence: None)
  Receive Date: 20140418
  Receipt Date: 20140418
  Transmission Date: 20141212
  Serious: Yes (Hospitalization, Other)
  Sender: FDA-Public Use
  Company Number: None

PATIENT
  Age: 80 Year
  Sex: Male
  Weight: 82 kg

DRUGS (20)
  1. XARELTO [Suspect]
     Indication: ATRIAL FIBRILLATION
     Dosage: 20 MG DAILY WITH A MEAL ORAL
     Route: 048
  2. LIPITOR [Concomitant]
  3. LISINOPRIL [Concomitant]
  4. NORVASC [Concomitant]
  5. NEXIUM [Concomitant]
  6. ULTRAM [Concomitant]
  7. NEURONTIN [Concomitant]
  8. FLOMAX [Concomitant]
  9. ATROVENT [Concomitant]
  10. ASPIRIN [Concomitant]
  11. MULTIVITAMINS [Concomitant]
  12. VITAMIN B12 [Concomitant]
  13. VITAMIN C [Concomitant]
  14. ZINC [Concomitant]
  15. ULORIC [Concomitant]
  16. XARELTO [Concomitant]
  17. AMIODARONE [Concomitant]
  18. NITROL PRN [Concomitant]
  19. BACTRIM DS [Concomitant]
  20. URIBEL [Concomitant]

REACTIONS (7)
  - Dyspnoea [None]
  - Fatigue [None]
  - Asthenia [None]
  - Dizziness [None]
  - Faeces discoloured [None]
  - Gastrointestinal haemorrhage [None]
  - Anaemia [None]
